FAERS Safety Report 7235342-8 (Version None)
Quarter: 2011Q1

REPORT INFORMATION
  Report Type: 
  Country: None (occurrence: None)
  Receive Date: 20110120
  Receipt Date: 20110113
  Transmission Date: 20110831
  Serious: Yes (Hospitalization)
  Sender: FDA-Public Use
  Company Number: FR-JNJFOC-20110103432

PATIENT
  Age: 88 Year
  Sex: Male

DRUGS (6)
  1. KARDEGIC [Concomitant]
     Route: 065
  2. FLUINDIONE [Concomitant]
     Route: 065
  3. RIFAMPICIN [Suspect]
     Indication: FISTULA
     Route: 048
  4. TAVANIC [Suspect]
     Indication: FISTULA
     Route: 048
  5. NEURONTIN [Concomitant]
     Route: 065
  6. LANSOPRAZOLE [Concomitant]
     Route: 065

REACTIONS (4)
  - OCULAR ICTERUS [None]
  - VOMITING [None]
  - CHOLESTASIS [None]
  - ABDOMINAL PAIN UPPER [None]
